FAERS Safety Report 16974452 (Version 3)
Quarter: 2019Q4

REPORT INFORMATION
  Report Type: Spontaneous
  Country: JP (occurrence: JP)
  Receive Date: 20191030
  Receipt Date: 20191227
  Transmission Date: 20200122
  Serious: Yes (Other)
  Sender: FDA-Public Use
  Company Number: JP-MYLANLABS-2019M1094844

PATIENT
  Age: 62 Year
  Sex: Male

DRUGS (1)
  1. EPIPEN [Suspect]
     Active Substance: EPINEPHRINE
     Indication: FOOD ALLERGY
     Dosage: UNK
     Route: 030
     Dates: start: 20191007, end: 20191007

REACTIONS (3)
  - Injury associated with device [Recovered/Resolved]
  - Expired product administered [Unknown]
  - Device failure [Unknown]

NARRATIVE: CASE EVENT DATE: 20191007
